FAERS Safety Report 12217853 (Version 1)
Quarter: 2016Q1

REPORT INFORMATION
  Report Type: Spontaneous
  Country: US (occurrence: US)
  Receive Date: 20160329
  Receipt Date: 20160329
  Transmission Date: 20160526
  Serious: No
  Sender: FDA-Public Use
  Company Number: US-BAUSCH-BL-2016-002006

PATIENT
  Sex: Male

DRUGS (2)
  1. ECONOZOLE [Suspect]
     Active Substance: ECONAZOLE
     Indication: TINEA PEDIS
     Route: 065
     Dates: start: 20151014
  2. JUBLIA [Suspect]
     Active Substance: EFINACONAZOLE
     Indication: NAIL DISORDER
     Route: 065
     Dates: start: 20151014

REACTIONS (1)
  - Nail discolouration [Unknown]
